FAERS Safety Report 4644646-4 (Version None)
Quarter: 2005Q2

REPORT INFORMATION
  Report Type: 
  Country: None (occurrence: None)
  Receive Date: 20050422
  Receipt Date: 20050411
  Transmission Date: 20051028
  Serious: No
  Sender: FDA-Public Use
  Company Number: 2005GB00711

PATIENT
  Age: 66 Year
  Sex: Female
  Weight: 92 kg

DRUGS (5)
  1. CRESTOR [Suspect]
     Indication: DIABETES MELLITUS
     Dosage: 1 DF HS PO
     Route: 048
     Dates: start: 20040311, end: 20050331
  2. METFORMIN HCL [Concomitant]
  3. SALBUTAMOL [Concomitant]
  4. MOXONIDINE [Concomitant]
  5. IRBESARTAN [Concomitant]

REACTIONS (1)
  - CHOKING SENSATION [None]
